FAERS Safety Report 21102948 (Version 1)
Quarter: 2022Q3

REPORT INFORMATION
  Report Type: Spontaneous
  Country: US (occurrence: US)
  Receive Date: 20220720
  Receipt Date: 20220720
  Transmission Date: 20221027
  Serious: No
  Sender: FDA-Public Use
  Company Number: US-BRISTOL-MYERS SQUIBB COMPANY-2022-064915

PATIENT
  Sex: Male

DRUGS (1)
  1. AZACITIDINE [Suspect]
     Active Substance: AZACITIDINE
     Indication: Systemic mastocytosis
     Route: 048
     Dates: start: 20210713

REACTIONS (2)
  - Gastrointestinal disorder [Not Recovered/Not Resolved]
  - Tryptase increased [Not Recovered/Not Resolved]
